FAERS Safety Report 18764192 (Version 10)
Quarter: 2024Q3

REPORT INFORMATION
  Report Type: Report from Study
  Country: US (occurrence: US)
  Receive Date: 20210120
  Receipt Date: 20240726
  Transmission Date: 20241017
  Serious: Yes (Hospitalization, Other)
  Sender: TAKEDA
  Company Number: US-TAKEDA-US202028980

PATIENT
  Sex: Female

DRUGS (2)
  1. HUMAN IMMUNOGLOBULIN G [Suspect]
     Active Substance: HUMAN IMMUNOGLOBULIN G
     Indication: Selective IgG subclass deficiency
     Dosage: UNK
     Route: 042
  2. COVID-19 VACCINE NOS [Suspect]
     Active Substance: COVID-19 VACCINE
     Indication: Product used for unknown indication
     Dosage: UNK
     Route: 065

REACTIONS (24)
  - Autoimmune disorder [Unknown]
  - Anxiety [Unknown]
  - Blood pressure increased [Unknown]
  - Cerebrovascular accident [Unknown]
  - Temperature intolerance [Unknown]
  - Blood immunoglobulin A decreased [Unknown]
  - Panic attack [Unknown]
  - Immunoglobulins increased [Unknown]
  - Weight increased [Unknown]
  - Blood cholesterol increased [Unknown]
  - Pain [Unknown]
  - Lymphadenopathy [Unknown]
  - Infusion site pain [Unknown]
  - Urticaria [Recovering/Resolving]
  - Skin disorder [Unknown]
  - Vitiligo [Unknown]
  - Thyroid disorder [Unknown]
  - Connective tissue disorder [Unknown]
  - Vein disorder [Unknown]
  - Incorrect drug administration rate [Unknown]
  - Abdominal distension [Unknown]
  - Rash [Unknown]
  - Malaise [Unknown]
  - Fatigue [Unknown]
